FAERS Safety Report 19804770 (Version 2)
Quarter: 2021Q3

REPORT INFORMATION
  Report Type: Report from Study
  Country: None (occurrence: US)
  Receive Date: 20210908
  Receipt Date: 20210915
  Transmission Date: 20211014
  Serious: Yes (Other)
  Sender: FDA-Public Use
  Company Number: US-ABBVIE-21K-163-4068327-00

PATIENT
  Sex: Female

DRUGS (3)
  1. COVID?19 VACCINE [Concomitant]
     Indication: COVID-19 IMMUNISATION
     Dosage: JOHNSON + JOHNSON
     Route: 030
     Dates: start: 20210405, end: 20210405
  2. HUMIRA [Suspect]
     Active Substance: ADALIMUMAB
     Indication: PRODUCT USED FOR UNKNOWN INDICATION
     Dosage: CITRATE FREE
     Route: 058
     Dates: end: 2021
  3. COVID?19 VACCINE [Concomitant]
     Dosage: JOHNSON + JOHNSON
     Route: 030
     Dates: start: 2021, end: 2021

REACTIONS (4)
  - Uveitis [Unknown]
  - SARS-CoV-2 test positive [Unknown]
  - Drug specific antibody present [Unknown]
  - Injection site pain [Recovered/Resolved]

NARRATIVE: CASE EVENT DATE: 2021
